FAERS Safety Report 13184731 (Version 1)
Quarter: 2017Q1

REPORT INFORMATION
  Report Type: Spontaneous
  Country: GB (occurrence: GB)
  Receive Date: 20170203
  Receipt Date: 20170203
  Transmission Date: 20170428
  Serious: Yes (Other)
  Sender: FDA-Public Use
  Company Number: GB-SA-2017SA015353

PATIENT
  Age: 76 Year
  Sex: Female

DRUGS (1)
  1. CLOPIDOGREL BISULFATE. [Suspect]
     Active Substance: CLOPIDOGREL BISULFATE
     Route: 065

REACTIONS (3)
  - Unresponsive to stimuli [Recovered/Resolved]
  - Altered state of consciousness [Recovered/Resolved]
  - Respiration abnormal [Recovered/Resolved]

NARRATIVE: CASE EVENT DATE: 20160712
